FAERS Safety Report 8921039 (Version 1)
Quarter: 2012Q4

REPORT INFORMATION
  Report Type: Report from Study
  Country: JP (occurrence: JP)
  Receive Date: 20121121
  Receipt Date: 20121121
  Transmission Date: 20130627
  Serious: Yes (Other)
  Sender: FDA-Public Use
  Company Number: JP-VERTEX PHARMACEUTICAL INC.-2012-024988

PATIENT
  Age: 57 Year
  Sex: Male

DRUGS (9)
  1. VX-950 (TELAPREVIR) [Suspect]
     Indication: HEPATITIS C
     Dosage: 2250 mg, UNK
     Route: 048
     Dates: start: 20120907, end: 20120909
  2. VX-950 (TELAPREVIR) [Suspect]
     Dosage: 1500 mg, UNK
     Route: 048
     Dates: start: 20120910, end: 20121012
  3. PEGINTERFERON ALFA-2B [Suspect]
     Indication: HEPATITIS C
     Dosage: 1.2 ?g/kg, UNK
     Route: 058
     Dates: start: 20120907, end: 20121005
  4. RIBAVIRIN [Suspect]
     Indication: HEPATITIS C
     Dosage: 1000 mg, UNK
     Route: 048
     Dates: start: 20120907, end: 20121005
  5. BASEN [Concomitant]
     Dosage: 0.6 mg, UNK
     Route: 048
  6. JANUVIA [Concomitant]
     Dosage: 50 mg, UNK
     Route: 048
  7. PARIET [Concomitant]
     Dosage: 10 mg, UNK
     Route: 048
  8. RIBALL [Concomitant]
     Dosage: 300 mg, UNK
     Route: 048
  9. METGLUCO [Concomitant]
     Dosage: 750 mg, UNK
     Route: 048

REACTIONS (2)
  - Neutropenia [Recovered/Resolved]
  - Leukopenia [Recovered/Resolved]
